FAERS Safety Report 8807483 (Version 1)
Quarter: 2012Q4

REPORT INFORMATION
  Report Type: 
  Country: US (occurrence: US)
  Receive Date: 20120925
  Receipt Date: 20120925
  Transmission Date: 20130627
  Serious: Yes (Death, Hospitalization)
  Sender: FDA-Public Use
  Company Number: US-PFIZER INC-001-0184-M0000030

PATIENT
  Age: 9 None
  Sex: Male
  Weight: 47.63 kg

DRUGS (3)
  1. ZOLOFT [Suspect]
     Dosage: UNK
  2. BENADRYL [Suspect]
     Indication: SEDATION
     Dosage: UNK
     Route: 048
  3. HALDOL DECANOATE [Suspect]
     Indication: SEDATION
     Dosage: 3 mg daily
     Route: 065

REACTIONS (2)
  - Intentional overdose [Fatal]
  - Tardive dyskinesia [Fatal]
